FAERS Safety Report 23165836 (Version 2)
Quarter: 2023Q4

REPORT INFORMATION
  Report Type: Spontaneous
  Country: US (occurrence: US)
  Receive Date: 20231109
  Receipt Date: 20231114
  Transmission Date: 20240110
  Serious: Yes (Other)
  Sender: FDA-Public Use
  Company Number: US-PFIZER INC-PV202300180926

PATIENT
  Age: 57 Year
  Sex: Female

DRUGS (4)
  1. ZOMETA [Suspect]
     Active Substance: ZOLEDRONIC ACID
     Indication: Breast cancer metastatic
     Dosage: EVERY OTHER MONTH
  2. ZOMETA [Suspect]
     Active Substance: ZOLEDRONIC ACID
     Dosage: EVERY 3 MONTHS
     Dates: start: 200812
  3. ZOMETA [Suspect]
     Active Substance: ZOLEDRONIC ACID
     Dosage: EVERY 6 MONTHS
  4. ANASTROZOLE [Concomitant]
     Active Substance: ANASTROZOLE
     Indication: Breast cancer metastatic
     Dosage: UNK

REACTIONS (1)
  - Femur fracture [Unknown]
